FAERS Safety Report 21230175 (Version 2)
Quarter: 2022Q3

REPORT INFORMATION
  Report Type: Spontaneous
  Country: US (occurrence: US)
  Receive Date: 20220818
  Receipt Date: 20220901
  Transmission Date: 20221027
  Serious: Yes (Life-Threatening, Hospitalization)
  Sender: FDA-Public Use
  Company Number: US-TEVA-2022-US-2064479

PATIENT
  Age: 61 Year
  Sex: Female

DRUGS (5)
  1. EPINEPHRINE [Suspect]
     Active Substance: EPINEPHRINE
     Indication: Status asthmaticus
     Route: 058
  2. METHYLPREDNISOLONE [Suspect]
     Active Substance: METHYLPREDNISOLONE
     Indication: Status asthmaticus
     Route: 042
  3. ALBUTEROL [Suspect]
     Active Substance: ALBUTEROL
     Indication: Status asthmaticus
     Dosage: THE PATIENT RECEIVED ALBUTEROL NEBULIZER
     Route: 055
  4. MAGNESIUM [Suspect]
     Active Substance: MAGNESIUM
     Indication: Status asthmaticus
     Route: 042
  5. TIOTROPIUM [Suspect]
     Active Substance: TIOTROPIUM
     Indication: Status asthmaticus
     Dosage: THE PATIENT RECEIVED TIOTROPIUM NEBULISER
     Route: 055

REACTIONS (2)
  - Therapy non-responder [Unknown]
  - Stress cardiomyopathy [Unknown]
